FAERS Safety Report 16372854 (Version 2)
Quarter: 2019Q3

REPORT INFORMATION
  Report Type: Spontaneous
  Country: JP (occurrence: JP)
  Receive Date: 20190530
  Receipt Date: 20190904
  Transmission Date: 20191004
  Serious: Yes (Hospitalization)
  Sender: FDA-Public Use
  Company Number: JP-EISAI MEDICAL RESEARCH-EC-2019-056888

PATIENT
  Age: 69 Year
  Sex: Male
  Weight: 62 kg

DRUGS (2)
  1. LENVIMA [Suspect]
     Active Substance: LENVATINIB
     Indication: HEPATOCELLULAR CARCINOMA
     Route: 048
     Dates: start: 20190210, end: 20190213
  2. MORPHINE HYDROCHLORIDE HYDRATE [Suspect]
     Active Substance: MORPHINE HYDROCHLORIDE
     Indication: METASTASES TO LUNG
     Dosage: DOSE AND FREQUENCY UNKNOWN
     Route: 065
     Dates: start: 20190210, end: 20190715

REACTIONS (1)
  - Hepatic encephalopathy [Recovered/Resolved]

NARRATIVE: CASE EVENT DATE: 20190213
